FAERS Safety Report 10220834 (Version 4)
Quarter: 2014Q4

REPORT INFORMATION
  Report Type: Report from Study
  Country: CA (occurrence: None)
  Receive Date: 20140604
  Receipt Date: 20141218
  Transmission Date: 20150528
  Serious: Yes (Hospitalization)
  Sender: FDA-Public Use
  Company Number: 2014MPI00596

PATIENT
  Age: 25 Year
  Sex: Female
  Weight: 67.8 kg

DRUGS (4)
  1. DOXORUBICIN [Suspect]
     Active Substance: DOXORUBICIN
     Indication: HODGKIN^S DISEASE
     Route: 042
     Dates: start: 20140429, end: 20140513
  2. DACARBAZINE. [Suspect]
     Active Substance: DACARBAZINE
     Indication: HODGKIN^S DISEASE
     Route: 042
     Dates: start: 20140429, end: 20140513
  3. BRENTUXIMAB VEDOTIN [Suspect]
     Active Substance: BRENTUXIMAB VEDOTIN
     Indication: HODGKIN^S DISEASE
     Route: 042
     Dates: start: 20140429, end: 20140513
  4. VINBLASTINE [Suspect]
     Active Substance: VINBLASTINE
     Indication: HODGKIN^S DISEASE
     Route: 042
     Dates: start: 20140429, end: 20140513

REACTIONS (11)
  - Anal abscess [None]
  - Abdominal pain [None]
  - Gastroenteritis viral [None]
  - Blood pressure decreased [None]
  - Pain [None]
  - Febrile neutropenia [None]
  - Asthenia [None]
  - Haematocrit decreased [None]
  - Escherichia infection [None]
  - Haemoglobin decreased [None]
  - White blood cell count decreased [None]

NARRATIVE: CASE EVENT DATE: 20140509
